FAERS Safety Report 4271768-2 (Version None)
Quarter: 2004Q1

REPORT INFORMATION
  Report Type: 
  Country: None (occurrence: None)
  Receive Date: 20040115
  Receipt Date: 20010530
  Transmission Date: 20041129
  Serious: Yes (Hospitalization, Other)
  Sender: FDA-Public Use
  Company Number: US-GLAXOSMITHKLINE-A0348433A

PATIENT
  Age: 57 Year
  Sex: Female
  Weight: 96.6 kg

DRUGS (5)
  1. AVANDIA [Suspect]
     Indication: DIABETES MELLITUS NON-INSULIN-DEPENDENT
     Dosage: 8MG PER DAY
     Route: 048
     Dates: start: 20010219, end: 20010412
  2. DIABETA [Concomitant]
     Dosage: 10MG TWICE PER DAY
     Route: 048
     Dates: start: 20001114
  3. GLUCOPHAGE [Concomitant]
     Dosage: 1000MG TWICE PER DAY
     Route: 048
     Dates: start: 20000728
  4. AVAPRO [Concomitant]
     Dosage: 300MG PER DAY
  5. PREMPRO [Concomitant]
     Dosage: .625U PER DAY

REACTIONS (16)
  - ALANINE AMINOTRANSFERASE INCREASED [None]
  - ALBUMIN GLOBULIN RATIO ABNORMAL [None]
  - ANASTOMOTIC STENOSIS [None]
  - ASCITES [None]
  - ASPARTATE AMINOTRANSFERASE INCREASED [None]
  - BLOOD CREATININE ABNORMAL [None]
  - BLOOD GLUCOSE INCREASED [None]
  - HEPATIC CIRRHOSIS [None]
  - HEPATIC ENCEPHALOPATHY [None]
  - HEPATIC FAILURE [None]
  - JAUNDICE [None]
  - LIVER FUNCTION TEST ABNORMAL [None]
  - LIVER TRANSPLANT [None]
  - OEDEMA PERIPHERAL [None]
  - PLEURAL EFFUSION [None]
  - POST PROCEDURAL COMPLICATION [None]
